FAERS Safety Report 10108816 (Version 2)
Quarter: 2014Q2

REPORT INFORMATION
  Report Type: Report from Study
  Country: US (occurrence: US)
  Receive Date: 20140425
  Receipt Date: 20140509
  Transmission Date: 20141212
  Serious: Yes (Hospitalization)
  Sender: FDA-Public Use
  Company Number: US-JNJFOC-20140410064

PATIENT
  Age: 21 Year
  Sex: Female
  Weight: 61.1 kg

DRUGS (2)
  1. TYLENOL [Suspect]
     Route: 048
  2. TYLENOL [Suspect]
     Indication: SELF INJURIOUS BEHAVIOUR
     Dosage: HALF BOTTLE OF 325 MG
     Route: 048

REACTIONS (3)
  - Transaminases increased [Recovered/Resolved]
  - Overdose [Recovered/Resolved]
  - Vomiting [Recovered/Resolved]
